FAERS Safety Report 7463608-5 (Version None)
Quarter: 2011Q2

REPORT INFORMATION
  Report Type: 
  Country: None (occurrence: None)
  Receive Date: 20110506
  Receipt Date: 20110430
  Transmission Date: 20111010
  Serious: Yes (Other)
  Sender: FDA-Public Use
  Company Number: US-CEPHALON-2011002147

PATIENT
  Sex: Female

DRUGS (1)
  1. TRISENOX [Suspect]
     Route: 041

REACTIONS (2)
  - HEMIPARESIS [None]
  - HAEMORRHAGE INTRACRANIAL [None]
